FAERS Safety Report 9768218 (Version 1)
Quarter: 2013Q4

REPORT INFORMATION
  Report Type: Spontaneous
  Country: US (occurrence: US)
  Receive Date: 20131217
  Receipt Date: 20131217
  Transmission Date: 20140711
  Serious: No
  Sender: FDA-Public Use
  Company Number: US-TEVA-450221USA

PATIENT
  Age: 77 Year
  Sex: Female
  Weight: 83.08 kg

DRUGS (9)
  1. COPAXONE [Suspect]
     Indication: RELAPSING-REMITTING MULTIPLE SCLEROSIS
  2. NEURONTIN [Concomitant]
     Indication: NEUROPATHY PERIPHERAL
  3. HYDROCODONE [Concomitant]
     Indication: PAIN
  4. BACLOFEN [Concomitant]
     Indication: MUSCLE SPASMS
  5. TIZANIDINE [Concomitant]
     Indication: MUSCLE SPASMS
  6. ZOCOR [Concomitant]
  7. PROTONIX [Concomitant]
     Indication: GASTRIC ULCER
  8. ASPIRIN [Concomitant]
     Indication: PROPHYLAXIS
  9. LIDOCAINE [Concomitant]
     Indication: RASH

REACTIONS (3)
  - Rash [Not Recovered/Not Resolved]
  - Pruritus [Not Recovered/Not Resolved]
  - Injection site erythema [Recovered/Resolved]
